FAERS Safety Report 22352787 (Version 2)
Quarter: 2023Q2

REPORT INFORMATION
  Report Type: Spontaneous
  Country: US (occurrence: US)
  Receive Date: 20230523
  Receipt Date: 20230529
  Transmission Date: 20230722
  Serious: Yes (Hospitalization, Other)
  Sender: FDA-Public Use
  Company Number: US-ALKEM LABORATORIES LIMITED-US-ALKEM-2023-05271

PATIENT
  Age: 28 Year
  Sex: Male

DRUGS (12)
  1. ARIPIPRAZOLE [Suspect]
     Active Substance: ARIPIPRAZOLE
     Indication: Bipolar disorder
     Dosage: 2 MILLIGRAM (LOW DOSE)
     Route: 065
  2. ARIPIPRAZOLE [Suspect]
     Active Substance: ARIPIPRAZOLE
     Dosage: 4 MILLIGRAM; DOSAGE WAS INCREASED FROM 2 TO 4 MG
     Route: 065
  3. ARIPIPRAZOLE [Suspect]
     Active Substance: ARIPIPRAZOLE
     Dosage: 1 MILLIGRAM (RESTARTED ON AN EVEN LOWER DOSAGE, DOSAGE OF ARIPIPRAZOLE WAS INCREASED TO 2 MG)
     Route: 065
  4. LAMOTRIGINE [Suspect]
     Active Substance: LAMOTRIGINE
     Indication: Bipolar disorder
     Dosage: 25 MILLIGRAM, OD (ONCE A DAY IN THE EVENING)
     Route: 065
  5. LURASIDONE [Suspect]
     Active Substance: LURASIDONE
     Indication: Bipolar disorder
     Dosage: 20 MILLIGRAM (ONCE A DAY IN THE EVENING)
     Route: 065
  6. QUETIAPINE FUMARATE [Suspect]
     Active Substance: QUETIAPINE FUMARATE
     Indication: Hypomania
     Dosage: 25 MILLIGRAM, OD (ONCE A DAY IN THE EVENING)
     Route: 065
  7. LITHIUM [Concomitant]
     Active Substance: LITHIUM
     Indication: Hypomania
     Dosage: 450 MILLIGRAM, BID
     Route: 065
  8. LITHIUM [Concomitant]
     Active Substance: LITHIUM
     Dosage: 750 MILLIGRAM (ONCE A DAY IN THE MORNING)
     Route: 065
  9. LITHIUM [Concomitant]
     Active Substance: LITHIUM
     Dosage: 900 MILLIGRAM, HS (EVERY NIGHT AT BEDTIME)
     Route: 065
  10. BENZTROPINE [Concomitant]
     Active Substance: BENZTROPINE
     Indication: Product used for unknown indication
     Dosage: 1 MILLIGRAM
     Route: 065
  11. METFORMIN [Concomitant]
     Active Substance: METFORMIN HYDROCHLORIDE
     Indication: Product used for unknown indication
     Dosage: 500 MILLIGRAM (XR)
     Route: 065
  12. LEVOTHYROXINE [Concomitant]
     Active Substance: LEVOTHYROXINE
     Indication: Product used for unknown indication
     Dosage: 100 MICROGRAM, OD (ONCE A DAY IN THE MORNING)
     Route: 065

REACTIONS (3)
  - Pericarditis [Unknown]
  - Drug ineffective [Unknown]
  - Therapy partial responder [Unknown]
